FAERS Safety Report 22010459 (Version 1)
Quarter: 2023Q1

REPORT INFORMATION
  Report Type: Spontaneous
  Country: US (occurrence: US)
  Receive Date: 20230220
  Receipt Date: 20230220
  Transmission Date: 20230418
  Serious: No
  Sender: FDA-Public Use
  Company Number: US-BRISTOL-MYERS SQUIBB COMPANY-2023-024335

PATIENT
  Age: 74 Year
  Sex: Male
  Weight: 52.62 kg

DRUGS (1)
  1. REVLIMID [Suspect]
     Active Substance: LENALIDOMIDE
     Indication: Product used for unknown indication
     Dosage: FREQUENCY: 21DAYS ON 7DAYS OFF
     Route: 048

REACTIONS (1)
  - Hypersensitivity [Not Recovered/Not Resolved]
